FAERS Safety Report 20542927 (Version 1)
Quarter: 2022Q1

REPORT INFORMATION
  Report Type: Spontaneous
  Country: US (occurrence: US)
  Receive Date: 20220302
  Receipt Date: 20220302
  Transmission Date: 20220423
  Serious: No
  Sender: FDA-Public Use
  Company Number: US-PERRIGO-21US007939

PATIENT
  Sex: Male

DRUGS (1)
  1. SCOPOLAMINE [Suspect]
     Active Substance: SCOPOLAMINE
     Indication: Drooling
     Dosage: UNKNOWN, UNKNOWN
     Route: 062

REACTIONS (1)
  - Off label use [Unknown]
